FAERS Safety Report 4390376-6 (Version None)
Quarter: 2004Q2

REPORT INFORMATION
  Report Type: 
  Country: None (occurrence: None)
  Receive Date: 20040630
  Receipt Date: 20040615
  Transmission Date: 20050107
  Serious: Yes (Hospitalization)
  Sender: FDA-Public Use
  Company Number: 173012

PATIENT
  Age: 46 Year
  Sex: Female
  Weight: 70.7611 kg

DRUGS (2)
  1. AVONEX [Suspect]
     Indication: MULTIPLE SCLEROSIS
     Dosage: 30 MCG QW IM
     Route: 030
     Dates: start: 19960101
  2. VITAMIN C [Concomitant]

REACTIONS (5)
  - AMNESIA [None]
  - BLINDNESS TRANSIENT [None]
  - GAIT DISTURBANCE [None]
  - HYPERSENSITIVITY [None]
  - MULTIPLE ALLERGIES [None]
